FAERS Safety Report 13929569 (Version 11)
Quarter: 2024Q3

REPORT INFORMATION
  Report Type: Spontaneous
  Country: US (occurrence: US)
  Receive Date: 20170901
  Receipt Date: 20240807
  Transmission Date: 20241016
  Serious: Yes (Other)
  Sender: PFIZER
  Company Number: US-PFIZER INC-2017375987

PATIENT
  Age: 54 Year
  Sex: Female
  Weight: 59 kg

DRUGS (3)
  1. XELJANZ [Suspect]
     Active Substance: TOFACITINIB CITRATE
     Indication: Rheumatoid arthritis
     Dosage: 5MG PO (ORAL) BID
     Route: 048
     Dates: start: 201707, end: 20231219
  2. NAPROXEN [Concomitant]
     Active Substance: NAPROXEN
     Dosage: TAKE ONE TABLET BY MOUTH TWICE A DAY WITH MEALS
     Route: 048
  3. OMEPRAZOLE SODIUM [Concomitant]
     Active Substance: OMEPRAZOLE SODIUM
     Dosage: AKE ONE CAPSULE BY MOUTH ONCE DAILY BEFORE MEALS
     Route: 048

REACTIONS (4)
  - Craniotomy [Unknown]
  - Tuberculin test positive [Unknown]
  - Peripheral swelling [Not Recovered/Not Resolved]
  - Urinary tract infection [Unknown]

NARRATIVE: CASE EVENT DATE: 20170816
